FAERS Safety Report 6713313-5 (Version None)
Quarter: 2010Q2

REPORT INFORMATION
  Report Type: 
  Country: None (occurrence: None)
  Receive Date: 20100504
  Receipt Date: 20100422
  Transmission Date: 20101027
  Serious: Yes (Hospitalization)
  Sender: FDA-Public Use
  Company Number: 167-20484-09090425

PATIENT
  Age: 34 Year
  Sex: Female
  Weight: 64 kg

DRUGS (5)
  1. INNOHEP [Suspect]
     Indication: CARDIAC DISORDER
     Dosage: SEE IMAGE
     Route: 058
     Dates: start: 20040504, end: 20040505
  2. INNOHEP [Suspect]
     Indication: CARDIAC DISORDER
     Dosage: SEE IMAGE
     Route: 058
     Dates: start: 20040506, end: 20040513
  3. INNOHEP [Suspect]
     Indication: CARDIAC DISORDER
     Dosage: SEE IMAGE
     Route: 058
     Dates: start: 20040514, end: 20040529
  4. INNOHEP [Suspect]
     Indication: CARDIAC DISORDER
     Dosage: SEE IMAGE
     Route: 058
     Dates: start: 20040530, end: 20040602
  5. WARFARIN SODIUM [Concomitant]

REACTIONS (3)
  - ABORTION SPONTANEOUS [None]
  - BLIGHTED OVUM [None]
  - DRUG EXPOSURE DURING PREGNANCY [None]
